FAERS Safety Report 6578156-4 (Version None)
Quarter: 2010Q1

REPORT INFORMATION
  Report Type: 
  Country: None (occurrence: None)
  Receive Date: 20100211
  Receipt Date: 20100201
  Transmission Date: 20100710
  Serious: Yes (Other)
  Sender: FDA-Public Use
  Company Number: JP-PFIZER INC-2010007574

PATIENT
  Age: 68 Year
  Sex: Male

DRUGS (4)
  1. LIPITOR [Suspect]
     Dosage: 10 MG, DAILY
     Route: 048
     Dates: start: 20091101, end: 20100107
  2. PLAVIX [Concomitant]
     Dosage: UNK
     Route: 048
     Dates: start: 20090901
  3. ASPIRIN [Concomitant]
     Route: 048
  4. GASMOTIN [Concomitant]
     Dosage: UNK
     Route: 048
     Dates: start: 20090701

REACTIONS (1)
  - INTERSTITIAL LUNG DISEASE [None]
